FAERS Safety Report 11604135 (Version 1)
Quarter: 2015Q3

REPORT INFORMATION
  Report Type: Spontaneous
  Country: US (occurrence: US)
  Receive Date: 20150916
  Receipt Date: 20150916
  Transmission Date: 20151125
  Serious: No
  Sender: FDA-Public Use
  Company Number: US-ELI_LILLY_AND_COMPANY-US201405009456

PATIENT
  Age: 72 Year

DRUGS (1)
  1. HUMALOG MIX50/50 [Suspect]
     Active Substance: INSULIN LISPRO
     Indication: TYPE 2 DIABETES MELLITUS
     Dosage: 38 U, QD
     Route: 065

REACTIONS (2)
  - Abdominal distension [Unknown]
  - Head discomfort [Unknown]

NARRATIVE: CASE EVENT DATE: 20140527
